FAERS Safety Report 7599489-9 (Version None)
Quarter: 2011Q3

REPORT INFORMATION
  Report Type: 
  Country: None (occurrence: None)
  Receive Date: 20110711
  Receipt Date: 20101124
  Transmission Date: 20111222
  Serious: Yes (Disabling, Other)
  Sender: FDA-Public Use
  Company Number: US-BAYER-201036018NA

PATIENT
  Age: 66 Year
  Sex: Female

DRUGS (1)
  1. BETASERON [Suspect]
     Indication: RELAPSING-REMITTING MULTIPLE SCLEROSIS
     Dosage: BETAJECT
     Route: 058
     Dates: start: 20100616, end: 20110228

REACTIONS (9)
  - BALANCE DISORDER [None]
  - FALL [None]
  - ABASIA [None]
  - RASH GENERALISED [None]
  - ADVERSE EVENT [None]
  - COORDINATION ABNORMAL [None]
  - PRURITUS GENERALISED [None]
  - MUSCULAR WEAKNESS [None]
  - HEADACHE [None]
